FAERS Safety Report 24557830 (Version 1)
Quarter: 2024Q4

REPORT INFORMATION
  Report Type: Spontaneous
  Country: US (occurrence: US)
  Receive Date: 20241028
  Receipt Date: 20241028
  Transmission Date: 20250115
  Serious: Yes (Disabling, Other)
  Sender: REGENERON
  Company Number: US-REGENERON PHARMACEUTICALS, INC.-2024-144359

PATIENT
  Sex: Male

DRUGS (3)
  1. EYLEA [Suspect]
     Active Substance: AFLIBERCEPT
     Indication: Retinal vein occlusion
     Dosage: 2 MG, GIVEN 4 WEEKS APART, FORMULATION: UNKNOWN
     Route: 031
     Dates: start: 20240723, end: 20240723
  2. EYLEA [Suspect]
     Active Substance: AFLIBERCEPT
     Dosage: 2 MG, GIVEN 4 WEEKS APART, FORMULATION: UNKNOWN
     Route: 031
     Dates: start: 20240820, end: 20240820
  3. EYLEA [Suspect]
     Active Substance: AFLIBERCEPT
     Dosage: 2 MG, GIVEN 4 WEEKS APART, FORMULATION: UNKNOWN
     Route: 031
     Dates: start: 20240917, end: 20240917

REACTIONS (3)
  - Blindness unilateral [Unknown]
  - Retinal degeneration [Not Recovered/Not Resolved]
  - Retinal occlusive vasculitis [Unknown]

NARRATIVE: CASE EVENT DATE: 20240101
